FAERS Safety Report 24625855 (Version 1)
Quarter: 2024Q4

REPORT INFORMATION
  Report Type: Spontaneous
  Country: US (occurrence: US)
  Receive Date: 20241115
  Receipt Date: 20241115
  Transmission Date: 20250114
  Serious: No
  Sender: ANI
  Company Number: US-ANIPHARMA-2024-US-051873

PATIENT
  Age: 62 Year
  Sex: Female

DRUGS (27)
  1. CORTICOTROPIN [Suspect]
     Active Substance: CORTICOTROPIN
     Indication: Rheumatoid arthritis
     Dosage: INJECT 80 UNITS (1ML) SUBCUTANEOUSLY TWO TIMES PER WEEK
     Route: 058
  2. PLAQUENIL [Concomitant]
     Active Substance: HYDROXYCHLOROQUINE SULFATE
  3. FLUCONAZOLE [Concomitant]
     Active Substance: FLUCONAZOLE
  4. PROAIR RESPICLICK [Concomitant]
     Active Substance: ALBUTEROL SULFATE
  5. LYRICA [Concomitant]
     Active Substance: PREGABALIN
  6. CALCIUM\VITAMIN D [Concomitant]
     Active Substance: CALCIUM\VITAMIN D
  7. PROBIOTICS NOS [Concomitant]
     Active Substance: PROBIOTICS NOS
  8. METHOCARBAMOL [Concomitant]
     Active Substance: METHOCARBAMOL
  9. FOLIC ACID [Concomitant]
     Active Substance: FOLIC ACID
  10. POTASSIUM [Concomitant]
     Active Substance: POTASSIUM
  11. ACETAMINOPHEN\HYDROCODONE [Concomitant]
     Active Substance: ACETAMINOPHEN\HYDROCODONE
  12. ROSUVASTATIN CALCIUM [Concomitant]
     Active Substance: ROSUVASTATIN CALCIUM
  13. MUCINEX MAXIMUM STRENGTH [Concomitant]
     Active Substance: GUAIFENESIN
  14. OMEPRAZOLE [Concomitant]
     Active Substance: OMEPRAZOLE
  15. SAVELLA [Concomitant]
     Active Substance: MILNACIPRAN HYDROCHLORIDE
  16. LYSINE [Concomitant]
     Active Substance: LYSINE
  17. VITAMIN C [Concomitant]
     Active Substance: ASCORBIC ACID
  18. GLUCOSAMINE SULFATE [Concomitant]
     Active Substance: GLUCOSAMINE SULFATE
  19. CENTRUM SILVER 50+WOMEN [Concomitant]
  20. CIMZIA [Concomitant]
     Active Substance: CERTOLIZUMAB PEGOL
  21. FISH OIL [Concomitant]
     Active Substance: FISH OIL
  22. MELOXICAM [Concomitant]
     Active Substance: MELOXICAM
  23. WOMENS HAIR, SKIN + NAILS [Concomitant]
  24. TRELEGY ELLIPTA [Concomitant]
     Active Substance: FLUTICASONE FUROATE\UMECLIDINIUM BROMIDE\VILANTEROL TRIFENATATE
  25. PROLIA [Concomitant]
     Active Substance: DENOSUMAB
  26. VALTREX [Concomitant]
     Active Substance: VALACYCLOVIR HYDROCHLORIDE
  27. PREDNISONE [Concomitant]
     Active Substance: PREDNISONE

REACTIONS (1)
  - Neoplasm malignant [Unknown]

NARRATIVE: CASE EVENT DATE: 20240920
